FAERS Safety Report 20296796 (Version 1)
Quarter: 2022Q1

REPORT INFORMATION
  Report Type: Spontaneous
  Country: US (occurrence: US)
  Receive Date: 20220105
  Receipt Date: 20220105
  Transmission Date: 20220423
  Serious: Yes (Hospitalization, Other)
  Sender: FDA-Public Use
  Company Number: US-APOTEX-2021AP047370

PATIENT
  Age: 54 Year
  Sex: Male

DRUGS (9)
  1. CLOPIDOGREL [Interacting]
     Active Substance: CLOPIDOGREL BISULFATE
     Indication: Product used for unknown indication
     Dosage: 75 MILLIGRAM, QD
     Route: 065
  2. CLOPIDOGREL [Interacting]
     Active Substance: CLOPIDOGREL BISULFATE
     Dosage: UNK, DOUBLE THERAPY
     Route: 065
  3. APIXABAN [Interacting]
     Active Substance: APIXABAN
     Indication: Product used for unknown indication
     Dosage: 5 MILLIGRAM, BID
     Route: 065
  4. AMIODARONE [Interacting]
     Active Substance: AMIODARONE
     Indication: Atrial flutter
     Dosage: UNK
     Route: 048
  5. ASPIRIN [Interacting]
     Active Substance: ASPIRIN
     Indication: Product used for unknown indication
     Dosage: 81 MILLIGRAM, QD
     Route: 065
  6. AMIODARONE [Concomitant]
     Active Substance: AMIODARONE
     Indication: Atrial flutter
     Dosage: 150 MILLIGRAM, BOLUS
     Route: 042
  7. AMIODARONE [Concomitant]
     Active Substance: AMIODARONE
     Dosage: 1 MILLIGRAM PER MINUTE
     Route: 041
  8. AMIODARONE [Concomitant]
     Active Substance: AMIODARONE
     Dosage: 0.5 MILLIGRAM PER MINUTE
     Route: 041
  9. HEPARIN [Concomitant]
     Active Substance: HEPARIN SODIUM
     Indication: Atrial flutter
     Dosage: UNK
     Route: 042

REACTIONS (2)
  - Drug interaction [Unknown]
  - Pericardial haemorrhage [Recovered/Resolved]
